FAERS Safety Report 10372419 (Version 1)
Quarter: 2014Q3

REPORT INFORMATION
  Report Type: Spontaneous
  Country: US (occurrence: US)
  Receive Date: 20140808
  Receipt Date: 20140808
  Transmission Date: 20150326
  Serious: No
  Sender: FDA-Public Use
  Company Number: US-BRISTOL-MYERS SQUIBB COMPANY-20990099

PATIENT
  Age: 74 Year
  Sex: Female

DRUGS (10)
  1. LASIX [Concomitant]
     Active Substance: FUROSEMIDE
  2. FLAXSEED [Concomitant]
     Active Substance: FLAX SEED
  3. VITAMIN C [Concomitant]
     Active Substance: ASCORBIC ACID
  4. SPRYCEL [Suspect]
     Active Substance: DASATINIB
     Dates: start: 20120918
  5. METFORMIN [Concomitant]
     Active Substance: METFORMIN HYDROCHLORIDE
  6. NOVOLOG [Concomitant]
     Active Substance: INSULIN ASPART
  7. METOPROLOL [Concomitant]
     Active Substance: METOPROLOL
  8. MAGNESIUM [Concomitant]
     Active Substance: MAGNESIUM
  9. ASPIRIN. [Concomitant]
     Active Substance: ASPIRIN
  10. SIMVASTATIN. [Concomitant]
     Active Substance: SIMVASTATIN

REACTIONS (1)
  - Cellulitis [Unknown]
